FAERS Safety Report 17498648 (Version 1)
Quarter: 2020Q1

REPORT INFORMATION
  Report Type: Spontaneous
  Country: US (occurrence: US)
  Receive Date: 20200304
  Receipt Date: 20200304
  Transmission Date: 20200409
  Serious: Yes (Death)
  Sender: FDA-Public Use
  Company Number: US-VIFOR (INTERNATIONAL) INC.-VIT-2020-04037

PATIENT
  Age: 92 Year
  Sex: Male

DRUGS (9)
  1. METOPROLOL. [Concomitant]
     Active Substance: METOPROLOL
  2. VITAMIN E [Concomitant]
     Active Substance: .ALPHA.-TOCOPHEROL
  3. VELTASSA [Suspect]
     Active Substance: PATIROMER
     Indication: HYPERKALAEMIA
     Dates: start: 20160916, end: 20200221
  4. IBUPROFEN. [Concomitant]
     Active Substance: IBUPROFEN
  5. SIMVASTATIN. [Concomitant]
     Active Substance: SIMVASTATIN
  6. TYLENOL [Concomitant]
     Active Substance: ACETAMINOPHEN
  7. FISH OIL [Concomitant]
     Active Substance: FISH OIL
  8. RENVELA [Concomitant]
     Active Substance: SEVELAMER CARBONATE
  9. VITAMIN D [Concomitant]
     Active Substance: VITAMIN D NOS

REACTIONS (1)
  - Death [Fatal]

NARRATIVE: CASE EVENT DATE: 20200221
